FAERS Safety Report 10777020 (Version 23)
Quarter: 2018Q3

REPORT INFORMATION
  Report Type: Report from Study
  Country: CA (occurrence: CA)
  Receive Date: 20150209
  Receipt Date: 20180702
  Transmission Date: 20181010
  Serious: Yes (Death, Hospitalization, Other)
  Sender: FDA-Public Use
  Company Number: PHHY2014CA164833

PATIENT
  Age: 55 Year
  Sex: Male

DRUGS (9)
  1. SANDOSTATIN LAR DEPOT [Suspect]
     Active Substance: OCTREOTIDE ACETATE
     Dosage: 20 MG, QMO (EVERY 4 WEEKS)
     Route: 030
     Dates: start: 20141114, end: 20160526
  2. SANDOSTATIN [Suspect]
     Active Substance: OCTREOTIDE ACETATE
     Dosage: UNK
     Route: 058
     Dates: start: 2018
  3. URSODIOL. [Concomitant]
     Active Substance: URSODIOL
     Indication: LIVER DISORDER
     Dosage: 500 MG, BID
     Route: 065
  4. SANDOSTATIN LAR DEPOT [Suspect]
     Active Substance: OCTREOTIDE ACETATE
     Dosage: 30 MG, QMO
     Route: 030
  5. SANDOSTATIN [Suspect]
     Active Substance: OCTREOTIDE ACETATE
     Indication: METASTATIC CARCINOID TUMOUR
     Dosage: 150 UG, TID
     Route: 058
     Dates: start: 20141101, end: 20141205
  6. ALLOPURINOL. [Concomitant]
     Active Substance: ALLOPURINOL
     Indication: GOUT
     Dosage: 200 MG, QD DAILY AT BREAKFAST
     Route: 065
  7. SANDOSTATIN LAR DEPOT [Suspect]
     Active Substance: OCTREOTIDE ACETATE
     Indication: METASTATIC CARCINOID TUMOUR
     Dosage: 30 MG, QMO
     Route: 030
     Dates: start: 20141101
  8. RIVASA [Concomitant]
     Active Substance: ASPIRIN
     Indication: CARDIAC DISORDER
     Dosage: 80 MG, DAILY WITH BREAKFAST
     Route: 065
  9. SOMATULINE [Suspect]
     Active Substance: LANREOTIDE ACETATE
     Indication: PRODUCT USED FOR UNKNOWN INDICATION
     Dosage: UNK
     Route: 065

REACTIONS (41)
  - General physical health deterioration [Recovered/Resolved]
  - Mood swings [Unknown]
  - Discomfort [Unknown]
  - Gastrointestinal neoplasm [Recovered/Resolved]
  - Asthenia [Unknown]
  - Pain [Unknown]
  - Postoperative wound infection [Unknown]
  - Carcinoid heart disease [Unknown]
  - Chest pain [Unknown]
  - General physical health deterioration [Unknown]
  - Oedema peripheral [Unknown]
  - Stress [Unknown]
  - Malaise [Unknown]
  - Localised oedema [Unknown]
  - Dyspnoea [Unknown]
  - Jaundice cholestatic [Unknown]
  - Metastases to liver [Recovering/Resolving]
  - Abdominal distension [Unknown]
  - Oedema [Unknown]
  - Oedema genital [Unknown]
  - Infection [Recovered/Resolved]
  - Ascites [Unknown]
  - Abdominal infection [Unknown]
  - Fluid retention [Unknown]
  - Blood pressure systolic increased [Unknown]
  - Pyrexia [Unknown]
  - Anxiety [Unknown]
  - Candida infection [Unknown]
  - Ocular icterus [Unknown]
  - Hepatic lesion [Unknown]
  - Pallor [Unknown]
  - Hepatic cirrhosis [Unknown]
  - Weight decreased [Unknown]
  - Pruritus [Unknown]
  - Death [Fatal]
  - Malignant neoplasm progression [Unknown]
  - Fatigue [Unknown]
  - Self esteem decreased [Unknown]
  - Psychiatric symptom [Unknown]
  - Nausea [Unknown]
  - Dyspnoea exertional [Unknown]

NARRATIVE: CASE EVENT DATE: 2014
